FAERS Safety Report 5317673-1 (Version None)
Quarter: 2007Q2

REPORT INFORMATION
  Report Type: 
  Country: None (occurrence: None)
  Receive Date: 20070507
  Receipt Date: 20070426
  Transmission Date: 20071010
  Serious: Yes (Hospitalization, Other)
  Sender: FDA-Public Use
  Company Number: PHEH2007US06440

PATIENT
  Age: 60 Year
  Sex: Female

DRUGS (1)
  1. ZELNORM [Suspect]
     Route: 048

REACTIONS (4)
  - ANGINA PECTORIS [None]
  - ASTHENIA [None]
  - DYSPNOEA [None]
  - SYNCOPE [None]
